FAERS Safety Report 11429239 (Version 4)
Quarter: 2017Q2

REPORT INFORMATION
  Report Type: Report from Study
  Country: JP (occurrence: JP)
  Receive Date: 20150828
  Receipt Date: 20170531
  Transmission Date: 20170829
  Serious: Yes (Other)
  Sender: FDA-Public Use
  Company Number: JP-ROCHE-1625183

PATIENT
  Age: 48 Year
  Sex: Female
  Weight: 57.7 kg

DRUGS (12)
  1. PERTUZUMAB [Suspect]
     Active Substance: PERTUZUMAB
     Dosage: MAINTAINANCE DOSE.?DATE OF MOST RECENT DOSE OF PERTUZUMAB PRIOR TO AE ONSET: 10/JUL/2015.?DOSE OF LA
     Route: 042
     Dates: start: 20150417
  2. PYRIDOXAL [Concomitant]
     Active Substance: PYRIDOXAL
     Indication: STOMATITIS
     Route: 048
     Dates: start: 20150708, end: 20150731
  3. ANCER [Concomitant]
     Indication: PROPHYLAXIS
     Route: 065
     Dates: start: 20150630, end: 20150731
  4. PERTUZUMAB [Suspect]
     Active Substance: PERTUZUMAB
     Indication: HER-2 POSITIVE BREAST CANCER
     Dosage: LOADING DOSE
     Route: 042
     Dates: start: 20150327
  5. MOBIC [Concomitant]
     Active Substance: MELOXICAM
     Indication: PROPHYLAXIS
     Route: 065
     Dates: start: 20150629, end: 20150803
  6. CEPHARANTHIN [Concomitant]
     Indication: PROPHYLAXIS
     Route: 065
     Dates: start: 20150629, end: 20150803
  7. TRASTUZUMAB EMTANSINE [Suspect]
     Active Substance: ADO-TRASTUZUMAB EMTANSINE
     Indication: HER-2 POSITIVE BREAST CANCER
     Dosage: DATE OF MOST RECENT DOSE OF TRASTUZUMAB EMTANSINE PRIOR TO AE ONSET 10/JUL/2015.?DOSE OF LAST TRASTU
     Route: 042
     Dates: start: 20150327
  8. 5-FLUOROURACIL [Suspect]
     Active Substance: FLUOROURACIL
     Indication: HER-2 POSITIVE BREAST CANCER
     Route: 065
     Dates: start: 20141227
  9. DERMOSOL-G [Concomitant]
     Indication: RADIATION SKIN INJURY
     Route: 065
     Dates: start: 20150730, end: 20151110
  10. DEXALTIN [Concomitant]
     Active Substance: DEXAMETHASONE
     Indication: STOMATITIS
     Route: 065
     Dates: start: 20150712, end: 20150731
  11. EPIRUBICIN [Suspect]
     Active Substance: EPIRUBICIN
     Indication: HER-2 POSITIVE BREAST CANCER
     Route: 065
     Dates: start: 20141227
  12. CYCLOPHOSPHAMIDE. [Suspect]
     Active Substance: CYCLOPHOSPHAMIDE
     Indication: HER-2 POSITIVE BREAST CANCER
     Route: 065
     Dates: start: 20141227

REACTIONS (1)
  - Cardiomyopathy [Recovered/Resolved]

NARRATIVE: CASE EVENT DATE: 20150731
